FAERS Safety Report 4362738-4 (Version None)
Quarter: 2004Q2

REPORT INFORMATION
  Report Type: 
  Country: None (occurrence: None)
  Receive Date: 20040524
  Receipt Date: 20040426
  Transmission Date: 20050107
  Serious: Yes (Other)
  Sender: FDA-Public Use
  Company Number: 200411563JP

PATIENT
  Age: 42 Year
  Sex: Male

DRUGS (4)
  1. ALLEGRA [Suspect]
     Indication: SEASONAL ALLERGY
     Route: 048
     Dates: start: 20040404
  2. TENORMIN [Suspect]
     Indication: HYPERTENSION
     Dates: start: 20031201
  3. METHIMAZOLE [Concomitant]
     Indication: BASEDOW'S DISEASE
     Dates: start: 20031201
  4. ALLELOCK [Concomitant]
     Indication: SEASONAL ALLERGY
     Dates: start: 20040301, end: 20040403

REACTIONS (3)
  - BLOOD CREATINE PHOSPHOKINASE INCREASED [None]
  - MYALGIA [None]
  - SOMNOLENCE [None]
